FAERS Safety Report 7247151-4 (Version None)
Quarter: 2011Q1

REPORT INFORMATION
  Report Type: 
  Country: None (occurrence: None)
  Receive Date: 20110127
  Receipt Date: 20100928
  Transmission Date: 20110831
  Serious: No
  Sender: FDA-Public Use
  Company Number: US-BAUSCH-2010BL005487

PATIENT
  Age: 78 Year
  Sex: Male

DRUGS (3)
  1. ALAWAY [Suspect]
     Indication: EYE IRRIGATION
     Route: 047
     Dates: start: 20100927, end: 20100927
  2. RESTASIS [Concomitant]
  3. ALAWAY [Suspect]
     Indication: SEASONAL ALLERGY
     Route: 047
     Dates: start: 20100927, end: 20100927

REACTIONS (1)
  - EYE IRRITATION [None]
